FAERS Safety Report 21786470 (Version 1)
Quarter: 2022Q4

REPORT INFORMATION
  Report Type: Report from Study
  Country: US (occurrence: None)
  Receive Date: 20221228
  Receipt Date: 20221228
  Transmission Date: 20230112
  Serious: Yes (Other)
  Sender: FDA-Public Use
  Company Number: US-Merck Healthcare KGaA-9167616

PATIENT
  Sex: Female

DRUGS (1)
  1. REBIF [Suspect]
     Active Substance: INTERFERON BETA-1A
     Indication: Multiple sclerosis
     Route: 058
     Dates: start: 20170619

REACTIONS (9)
  - Smear cervix abnormal [Unknown]
  - Influenza like illness [Not Recovered/Not Resolved]
  - Injection site pain [Unknown]
  - Injection site bruising [Unknown]
  - Cervicitis [Unknown]
  - Multiple sclerosis relapse [Recovering/Resolving]
  - Hypersomnia [Unknown]
  - Migraine [Not Recovered/Not Resolved]
  - Family stress [Unknown]
